FAERS Safety Report 6361149-X (Version None)
Quarter: 2009Q3

REPORT INFORMATION
  Report Type: 
  Country: None (occurrence: None)
  Receive Date: 20090916
  Receipt Date: 20090916
  Transmission Date: 20100115
  Serious: Yes (Life-Threatening, Other)
  Sender: FDA-Public Use
  Company Number: None

PATIENT
  Sex: Male
  Weight: 63.5036 kg

DRUGS (2)
  1. AMBIEN CR [Suspect]
     Indication: SLEEP DISORDER
     Dosage: 12.5 MG ONCE AT BEDTIME BY MOUTH
     Route: 048
     Dates: start: 20090301
  2. AMBIEN CR [Suspect]
     Indication: SLEEP DISORDER
     Dosage: 12.5 MG ONCE AT BEDTIME BY MOUTH
     Route: 048
     Dates: start: 20090601

REACTIONS (10)
  - AGITATION [None]
  - ANXIETY [None]
  - DISTURBANCE IN ATTENTION [None]
  - DIZZINESS [None]
  - HEADACHE [None]
  - HYPERACUSIS [None]
  - INITIAL INSOMNIA [None]
  - NERVOUSNESS [None]
  - PANIC ATTACK [None]
  - TINNITUS [None]
